FAERS Safety Report 9825762 (Version 2)
Quarter: 2014Q3

REPORT INFORMATION
  Report Type: Spontaneous
  Country: US (occurrence: None)
  Receive Date: 20131028
  Receipt Date: 20140814
  Transmission Date: 20150326
  Serious: Yes (Other)
  Sender: FDA-Public Use
  Company Number: 2013US002231

PATIENT
  Age: 67 Year
  Sex: Female
  Weight: 48 kg

DRUGS (7)
  1. ICLUSIG [Suspect]
     Active Substance: PONATINIB
     Indication: ACUTE LYMPHOCYTIC LEUKAEMIA
     Route: 048
     Dates: start: 20130724
  2. DAPSONE. [Concomitant]
     Active Substance: DAPSONE
  3. ICLUSIG [Suspect]
     Active Substance: PONATINIB
     Indication: CHROMOSOME ANALYSIS ABNORMAL
     Route: 048
     Dates: start: 20130724
  4. OMEPRAZOLE. [Concomitant]
     Active Substance: OMEPRAZOLE
  5. ACYCLOVIR. [Concomitant]
     Active Substance: ACYCLOVIR
  6. CELEXA [Concomitant]
     Active Substance: CITALOPRAM HYDROBROMIDE
  7. XANAX [Concomitant]
     Active Substance: ALPRAZOLAM

REACTIONS (4)
  - Rash macular [None]
  - Gait disturbance [None]
  - Hip surgery [None]
  - Poor peripheral circulation [None]

NARRATIVE: CASE EVENT DATE: 20130725
